FAERS Safety Report 4559613-9 (Version None)
Quarter: 2005Q1

REPORT INFORMATION
  Report Type: 
  Country: None (occurrence: None)
  Receive Date: 20050124
  Receipt Date: 20050114
  Transmission Date: 20050727
  Serious: Yes (Other)
  Sender: FDA-Public Use
  Company Number: NL-ABBOTT-05P-114-0286866-00

PATIENT
  Sex: Female

DRUGS (3)
  1. DEPAKENE [Suspect]
     Indication: DEPRESSION
     Route: 048
  2. CIPROFIBRATE [Interacting]
     Indication: HYPERCHOLESTEROLAEMIA
     Route: 048
     Dates: start: 20040708, end: 20041025
  3. PAROXETINE HYDROCHLORIDE [Concomitant]
     Indication: DRUG USE FOR UNKNOWN INDICATION
     Route: 048

REACTIONS (2)
  - DRUG INTERACTION [None]
  - DRUG LEVEL DECREASED [None]
